FAERS Safety Report 8121440-3 (Version None)
Quarter: 2012Q1

REPORT INFORMATION
  Report Type: 
  Country: None (occurrence: None)
  Receive Date: 20120208
  Receipt Date: 20120202
  Transmission Date: 20120608
  Serious: No
  Sender: FDA-Public Use
  Company Number: US-PFIZER INC-2012029786

PATIENT
  Sex: Male
  Weight: 70.295 kg

DRUGS (2)
  1. DILANTIN [Suspect]
     Indication: EPILEPSY
     Dosage: 30 MG, 3X/DAY
     Route: 048
     Dates: start: 19920101
  2. DILANTIN [Suspect]
     Dosage: UNK
     Route: 048

REACTIONS (2)
  - PAIN [None]
  - TENDONITIS [None]
